FAERS Safety Report 13045382 (Version 1)
Quarter: 2016Q4

REPORT INFORMATION
  Report Type: Spontaneous
  Country: US (occurrence: US)
  Receive Date: 20161219
  Receipt Date: 20161219
  Transmission Date: 20170207
  Serious: Yes (Hospitalization)
  Sender: FDA-Public Use
  Company Number: None

PATIENT
  Age: 78 Year
  Sex: Male
  Weight: 92.7 kg

DRUGS (1)
  1. AMIODARONE [Suspect]
     Active Substance: AMIODARONE
     Indication: ATRIAL FIBRILLATION
     Route: 048
     Dates: start: 20160321, end: 20161001

REACTIONS (4)
  - Cardiac hypertrophy [None]
  - Cardiac failure congestive [None]
  - Hyperthyroidism [None]
  - Atrial fibrillation [None]

NARRATIVE: CASE EVENT DATE: 20161029
